FAERS Safety Report 9709914 (Version 1)
Quarter: 2013Q4

REPORT INFORMATION
  Report Type: Spontaneous
  Country: US (occurrence: US)
  Receive Date: 20131126
  Receipt Date: 20131126
  Transmission Date: 20140711
  Serious: No
  Sender: FDA-Public Use
  Company Number: US-009507513-1311USA005917

PATIENT
  Sex: Female
  Weight: 216 kg

DRUGS (2)
  1. NEXPLANON [Suspect]
     Indication: CONTRACEPTION
     Dosage: 68 MG 1 STANDARD PACKAGE OF PF APPLI OF 1
     Route: 059
     Dates: start: 20130304, end: 20131018
  2. NEXPLANON [Suspect]
     Dosage: UNK
     Route: 059
     Dates: start: 20131018

REACTIONS (4)
  - Device breakage [Unknown]
  - Device kink [Unknown]
  - No adverse event [Unknown]
  - Product quality issue [Unknown]
